FAERS Safety Report 4286871-0 (Version None)
Quarter: 2004Q1

REPORT INFORMATION
  Report Type: 
  Country: None (occurrence: None)
  Receive Date: 20040121
  Receipt Date: 20030605
  Transmission Date: 20041129
  Serious: Yes (Other)
  Sender: FDA-Public Use
  Company Number: A03200301218

PATIENT
  Age: 60 Year
  Sex: Male
  Weight: 95.2554 kg

DRUGS (21)
  1. PLAVIX [Suspect]
     Indication: MYOCARDIAL INFARCTION
     Dosage: 75 MG QD - ORAL
     Route: 048
     Dates: start: 20030101
  2. DILTIAZEM HYDROCHLORIDE [Concomitant]
  3. BUSPIRONE HCL [Concomitant]
  4. CELECOXIB [Concomitant]
  5. CLONAZEPAM [Concomitant]
  6. GLYCERYL TRINITRATE [Concomitant]
  7. FLUOXETINE HCL [Concomitant]
  8. SUCRALFATE [Concomitant]
  9. ESOMEPRAZOLE [Concomitant]
  10. CHLORDIAZEPOXIDE/CLIDINIUM [Concomitant]
  11. DIMENHYDRINATE [Concomitant]
  12. ATENOLOL [Concomitant]
  13. GLYCERYL TRINITRATE [Concomitant]
  14. PSEUDOEPHEDRINE HCL W/GUAIFENESIN [Concomitant]
  15. HYDROXYZINE [Concomitant]
  16. AMITRIPTYLINE [Concomitant]
  17. DIPHENHYDRAMINE HCL [Concomitant]
  18. TAMSULOSIN HYDROCHLORIDE [Concomitant]
  19. SPIRONOLACTONE [Concomitant]
  20. FUROSEMIDE [Concomitant]
  21. HYDROCODONE [Concomitant]

REACTIONS (1)
  - MYOCARDIAL INFARCTION [None]
